FAERS Safety Report 4745289-4 (Version None)
Quarter: 2005Q3

REPORT INFORMATION
  Report Type: 
  Country: None (occurrence: None)
  Receive Date: 20050812
  Receipt Date: 20050802
  Transmission Date: 20060218
  Serious: Yes (Hospitalization)
  Sender: FDA-Public Use
  Company Number: HQWYE695304AUG05

PATIENT
  Age: 11 Month
  Sex: Male

DRUGS (5)
  1. CHILDREN'S ADVIL [Suspect]
     Dosage: 1 DOSE 1X PER 1 DAY, ORAL
     Route: 048
     Dates: start: 20050528, end: 20050529
  2. ASPEGIC 1000 [Suspect]
     Indication: VARICELLA
     Dosage: ORAL
     Route: 048
     Dates: start: 20050525, end: 20050529
  3. DOLIPRANE (PARACETAMOL, ) [Suspect]
     Dosage: ORAL
     Route: 048
     Dates: start: 20050530
  4. POLARAMINE [Suspect]
     Indication: PRURITUS
     Dosage: ORAL
     Route: 048
     Dates: start: 20050530, end: 20050601
  5. ZOVIRAX [Suspect]
     Indication: VARICELLA
     Dosage: ORAL
     Route: 048
     Dates: start: 20050530, end: 20050601

REACTIONS (7)
  - BACTERIAL INFECTION [None]
  - BLISTER INFECTED [None]
  - CELLULITIS [None]
  - COUGH [None]
  - DIARRHOEA [None]
  - SCAB [None]
  - SKIN NECROSIS [None]
